FAERS Safety Report 23925987 (Version 2)
Quarter: 2025Q3

REPORT INFORMATION
  Report Type: Spontaneous
  Country: US (occurrence: US)
  Receive Date: 20240531
  Receipt Date: 20250703
  Transmission Date: 20251020
  Serious: No
  Sender: RADIUS PHARM
  Company Number: US-RADIUS HEALTH INC.-2023US002515

PATIENT
  Age: 75 Year
  Sex: Female

DRUGS (2)
  1. TYMLOS [Suspect]
     Active Substance: ABALOPARATIDE
     Indication: Osteoporosis
     Route: 058
     Dates: start: 202301
  2. TYMLOS [Suspect]
     Active Substance: ABALOPARATIDE
     Route: 058
     Dates: start: 202301, end: 202412

REACTIONS (5)
  - Dizziness postural [Recovered/Resolved]
  - Constipation [Unknown]
  - Palpitations [Unknown]
  - Micturition urgency [Unknown]
  - Nocturia [Unknown]

NARRATIVE: CASE EVENT DATE: 20230101
